FAERS Safety Report 19854829 (Version 1)
Quarter: 2021Q3

REPORT INFORMATION
  Report Type: Spontaneous
  Country: US (occurrence: US)
  Receive Date: 20210920
  Receipt Date: 20210920
  Transmission Date: 20211014
  Serious: No
  Sender: FDA-Public Use
  Company Number: US-AUROBINDO-AUR-APL-2021-007135

PATIENT
  Age: 55 Year
  Sex: Female
  Weight: 63.5 kg

DRUGS (2)
  1. ALPRAZOLAM TABLETS USP 0.25MG [Suspect]
     Active Substance: ALPRAZOLAM
     Indication: INSOMNIA
  2. ALPRAZOLAM TABLETS USP 0.25MG [Suspect]
     Active Substance: ALPRAZOLAM
     Indication: ANXIETY
     Dosage: 1 DOSAGE FORM, FOUR TIMES/DAY (04 PILLS LAST NIGHT UPTO 1 SHE TOOK 08 PILLS)
     Route: 065

REACTIONS (3)
  - Drug ineffective [Unknown]
  - Abnormal dreams [Not Recovered/Not Resolved]
  - Extra dose administered [Unknown]
